FAERS Safety Report 11997630 (Version 1)
Quarter: 2016Q1

REPORT INFORMATION
  Report Type: Spontaneous
  Country: US (occurrence: US)
  Receive Date: 20160203
  Receipt Date: 20160203
  Transmission Date: 20160526
  Serious: No
  Sender: FDA-Public Use
  Company Number: US-ANACOR-2015ANA00164

PATIENT
  Age: 37 Year
  Sex: Female
  Weight: 58.5 kg

DRUGS (5)
  1. KERYDIN [Suspect]
     Active Substance: TAVABOROLE
     Indication: ONYCHOMYCOSIS
     Dosage: 1 GTT, 1X/DAY
     Route: 061
     Dates: start: 20151016, end: 20151019
  2. CIPRO [Concomitant]
     Active Substance: CIPROFLOXACIN HYDROCHLORIDE
     Dosage: UNK, AS NEEDED
  3. NEXIUM [Concomitant]
     Active Substance: ESOMEPRAZOLE MAGNESIUM
     Dosage: 40 MG, 1X/DAY
  4. MULTIVITAMIN [Concomitant]
     Active Substance: VITAMINS
     Dosage: UNK, 1X/DAY
  5. CROMOLYN EYE DROPS [Concomitant]
     Dosage: 1-2 GTT, UP TO 2X/WEEK
     Route: 047

REACTIONS (2)
  - Chest discomfort [Recovering/Resolving]
  - Discomfort [Recovering/Resolving]

NARRATIVE: CASE EVENT DATE: 20151017
